FAERS Safety Report 18664593 (Version 4)
Quarter: 2021Q3

REPORT INFORMATION
  Report Type: Spontaneous
  Country: GB (occurrence: GB)
  Receive Date: 20201225
  Receipt Date: 20210818
  Transmission Date: 20211014
  Serious: Yes (Other)
  Sender: FDA-Public Use
  Company Number: GB-BIOVITRUM-2020GB7889

PATIENT
  Age: 63 Year
  Sex: Female

DRUGS (27)
  1. NAPROXEN. [Concomitant]
     Active Substance: NAPROXEN
  2. OMEPRAZOLE. [Concomitant]
     Active Substance: OMEPRAZOLE
  3. SERTRALINE [Concomitant]
     Active Substance: SERTRALINE HYDROCHLORIDE
  4. TRAMADOL. [Concomitant]
     Active Substance: TRAMADOL
  5. ORFADIN [Suspect]
     Active Substance: NITISINONE
     Indication: ALKAPTONURIA
     Dates: start: 2012
  6. CHLORPHENAMINE [Concomitant]
     Active Substance: CHLORPHENIRAMINE MALEATE
  7. FULTIUM D3 [Concomitant]
     Active Substance: CHOLECALCIFEROL
  8. PIRITON [Concomitant]
     Active Substance: CHLORPHENIRAMINE MALEATE
  9. ALENDRONIC ACID [Concomitant]
     Active Substance: ALENDRONIC ACID
  10. COCODAMOL [Concomitant]
     Active Substance: ACETAMINOPHEN\CODEINE PHOSPHATE
     Dosage: 30/500 MG
  11. LISINOPRIL. [Concomitant]
     Active Substance: LISINOPRIL
  12. DOVOBET [Concomitant]
     Active Substance: BETAMETHASONE\CALCIPOTRIENE
  13. ADCAL D3 [Concomitant]
     Active Substance: CALCIUM CARBONATE\CHOLECALCIFEROL
  14. SIMVASTATIN. [Concomitant]
     Active Substance: SIMVASTATIN
  15. PREGABALIN. [Concomitant]
     Active Substance: PREGABALIN
  16. DICLOFENAC [Concomitant]
     Active Substance: DICLOFENAC
  17. LISINOPRIL. [Concomitant]
     Active Substance: LISINOPRIL
  18. THYROXINE [Concomitant]
     Active Substance: LEVOTHYROXINE
  19. DAKTACORT [Concomitant]
     Active Substance: HYDROCORTISONE\MICONAZOLE NITRATE
  20. ISPAGULA [Concomitant]
  21. BENDROFLUMETHIAZIDE [Concomitant]
     Active Substance: BENDROFLUMETHIAZIDE
  22. GTN SPRAY PR [Concomitant]
  23. AMITRIPTYLINE [Concomitant]
     Active Substance: AMITRIPTYLINE
  24. LEVOTHYROXINE. [Concomitant]
     Active Substance: LEVOTHYROXINE
  25. NAPROXEN. [Concomitant]
     Active Substance: NAPROXEN
  26. FUROSEMIDE. [Concomitant]
     Active Substance: FUROSEMIDE
  27. ASPIRIN. [Concomitant]
     Active Substance: ASPIRIN

REACTIONS (4)
  - Cataract nuclear [Not Recovered/Not Resolved]
  - Lenticular opacities [Not Recovered/Not Resolved]
  - Cataract [Not Recovered/Not Resolved]
  - Amino acid level increased [Not Recovered/Not Resolved]

NARRATIVE: CASE EVENT DATE: 2015
